FAERS Safety Report 5432220-1 (Version None)
Quarter: 2007Q3

REPORT INFORMATION
  Report Type: 
  Country: None (occurrence: None)
  Receive Date: 20070830
  Receipt Date: 20070820
  Transmission Date: 20080115
  Serious: Yes (Hospitalization)
  Sender: FDA-Public Use
  Company Number: BE-PFIZER INC-2007069117

PATIENT
  Sex: Female
  Weight: 66.5 kg

DRUGS (7)
  1. SU-011,248 [Suspect]
     Indication: BREAST CANCER
     Route: 048
  2. CAPECITABINE [Suspect]
     Indication: BREAST CANCER
     Route: 048
  3. NORMACOL [Concomitant]
     Route: 048
  4. PROZAC [Concomitant]
     Route: 048
  5. DAFALGAN [Concomitant]
     Route: 048
  6. BROMAZEPAM [Concomitant]
     Route: 048
  7. LORAMET [Concomitant]
     Route: 048

REACTIONS (3)
  - DYSPHAGIA [None]
  - MALAISE [None]
  - NAUSEA [None]
